FAERS Safety Report 9054861 (Version 1)
Quarter: 2013Q1

REPORT INFORMATION
  Report Type: Spontaneous
  Country: FR (occurrence: FR)
  Receive Date: 20130208
  Receipt Date: 20130208
  Transmission Date: 20140127
  Serious: Yes (Hospitalization)
  Sender: FDA-Public Use
  Company Number: FR-SANOFI-AVENTIS-2012SA089407

PATIENT
  Age: 87 Year
  Sex: Female

DRUGS (9)
  1. LOVENOX [Suspect]
     Indication: THROMBOSIS PROPHYLAXIS
     Route: 058
     Dates: start: 20120927
  2. BIPROFENID [Suspect]
     Indication: POSTOPERATIVE ANALGESIA
     Route: 048
     Dates: start: 20120924, end: 20121019
  3. KARDEGIC [Concomitant]
     Dosage: STRENGTH: 75 MG
     Route: 048
  4. SPIROCTAZINE [Concomitant]
     Dosage: STRENGTH: 25 MG/15 MG
     Route: 048
  5. AMLODIPINE [Concomitant]
     Dosage: STRENGTH: 5 MG
     Route: 048
  6. TAHOR [Concomitant]
     Dosage: STRENGTH: 10 MG
     Route: 048
  7. INEXIUM [Concomitant]
     Dosage: STRENGTH: 20 MG
     Route: 048
  8. LEVOTHYROX [Concomitant]
     Dosage: STRENGTH: 75 MCG
     Route: 048
  9. NEBIVOLOL [Concomitant]
     Dosage: STRENGTH: 5 MG
     Route: 048

REACTIONS (3)
  - Vomiting [Recovered/Resolved]
  - Abdominal pain [Recovered/Resolved]
  - Rectal haemorrhage [Recovered/Resolved]
